FAERS Safety Report 24177400 (Version 4)
Quarter: 2024Q3

REPORT INFORMATION
  Report Type: Spontaneous
  Country: US (occurrence: US)
  Receive Date: 20240806
  Receipt Date: 20240924
  Transmission Date: 20241017
  Serious: Yes (Hospitalization)
  Sender: BIOGEN
  Company Number: US-BIOGEN-2024BI01276691

PATIENT
  Age: 77 Year
  Sex: Male

DRUGS (18)
  1. VUMERITY [Suspect]
     Active Substance: DIROXIMEL FUMARATE
     Indication: Multiple sclerosis
     Dosage: MAINTENANCE DOSE
     Route: 050
  2. VUMERITY [Suspect]
     Active Substance: DIROXIMEL FUMARATE
     Route: 050
     Dates: start: 20210117
  3. VUMERITY [Suspect]
     Active Substance: DIROXIMEL FUMARATE
     Route: 050
     Dates: start: 20210127
  4. VUMERITY [Suspect]
     Active Substance: DIROXIMEL FUMARATE
     Route: 050
     Dates: start: 20240228, end: 20240909
  5. LYRICA [Concomitant]
     Active Substance: PREGABALIN
     Indication: Product used for unknown indication
     Route: 050
     Dates: start: 20240228
  6. Metformin (Glucophage) [Concomitant]
     Indication: Product used for unknown indication
     Route: 050
     Dates: start: 20240425
  7. senna (SENOKOT) [Concomitant]
     Indication: Product used for unknown indication
     Route: 050
     Dates: start: 20240426
  8. MICONAZOLE NITRATE (MONISTAT DERM) [Concomitant]
     Indication: Fungal infection
     Route: 050
     Dates: start: 20240426
  9. ZANAFLEX [Concomitant]
     Active Substance: TIZANIDINE HYDROCHLORIDE
     Indication: Product used for unknown indication
     Route: 050
     Dates: start: 20240506
  10. TAMSULOSIN HYDROCHLORIDE (FLOMAX) [Concomitant]
     Indication: Product used for unknown indication
     Route: 050
     Dates: start: 20240424
  11. ASPIRIN EC (ECOTRIN) [Concomitant]
     Indication: Product used for unknown indication
     Route: 050
     Dates: start: 20240228
  12. ATORVASTATIN CALCIUM (LIPITOR) [Concomitant]
     Indication: Product used for unknown indication
     Route: 050
     Dates: start: 20240228
  13. COZAAR [Concomitant]
     Active Substance: LOSARTAN POTASSIUM
     Indication: Product used for unknown indication
     Route: 050
     Dates: start: 20240228
  14. MELATONIN [Concomitant]
     Active Substance: MELATONIN
     Indication: Product used for unknown indication
     Route: 050
     Dates: start: 20240424
  15. CLONAZEPAM [Concomitant]
     Active Substance: CLONAZEPAM
     Indication: Product used for unknown indication
     Route: 050
  16. VITAMIN D3 [Concomitant]
     Active Substance: CHOLECALCIFEROL
     Indication: Product used for unknown indication
     Dosage: 25 MCG (1000 UT)
     Route: 050
  17. ferrous sulfate (IRON) 325 [Concomitant]
     Indication: Product used for unknown indication
     Route: 050
     Dates: start: 20240425, end: 20240909
  18. REMERON [Concomitant]
     Active Substance: MIRTAZAPINE
     Indication: Product used for unknown indication
     Route: 050
     Dates: start: 20240228

REACTIONS (3)
  - Urosepsis [Unknown]
  - Pneumonia aspiration [Unknown]
  - Lymphopenia [Unknown]

NARRATIVE: CASE EVENT DATE: 20240730
